FAERS Safety Report 9591362 (Version 1)
Quarter: 2013Q4

REPORT INFORMATION
  Report Type: Spontaneous
  Country: US (occurrence: US)
  Receive Date: 20131003
  Receipt Date: 20131003
  Transmission Date: 20140711
  Serious: No
  Sender: FDA-Public Use
  Company Number: US-AMGEN-USASP2012080910

PATIENT
  Age: 57 Year
  Sex: Female
  Weight: 73.47 kg

DRUGS (12)
  1. ENBREL [Suspect]
     Indication: RHEUMATOID ARTHRITIS
     Dosage: 50 MG, QWK
  2. PLAQUENIL                          /00072602/ [Concomitant]
     Dosage: 200 MG, UNK
  3. TRAMADOL HCL [Concomitant]
     Dosage: 50 MG, UNK
  4. PREVACID [Concomitant]
     Dosage: 15 MG, UNK
  5. FLONASE [Concomitant]
     Dosage: 0.05 %, UNK
  6. OXAZEPAM [Concomitant]
     Dosage: 10 MG, UNK
  7. BISOPROLOL FUMARATE [Concomitant]
     Dosage: 10 MG, UNK
  8. CALCIUM 600 + D [Concomitant]
     Dosage: UNK
  9. WELLBUTRIN [Concomitant]
     Dosage: 75 MG, UNK
  10. LYRICA [Concomitant]
     Dosage: 100 MG, UNK
  11. VALACYCLOVIR HCL PHARMA PAC [Concomitant]
     Dosage: 1 G, UNK
  12. MULTIVITAMINS, PLAIN [Concomitant]
     Dosage: UNK

REACTIONS (3)
  - Injection site swelling [Unknown]
  - Injection site erythema [Unknown]
  - Injection site discolouration [Unknown]
